FAERS Safety Report 14016674 (Version 10)
Quarter: 2018Q2

REPORT INFORMATION
  Report Type: Spontaneous
  Country: US (occurrence: US)
  Receive Date: 20170927
  Receipt Date: 20180413
  Transmission Date: 20180711
  Serious: Yes (Other)
  Sender: FDA-Public Use
  Company Number: US-PFIZER INC-2017417331

PATIENT
  Age: 59 Year
  Sex: Female

DRUGS (4)
  1. XELJANZ XR [Suspect]
     Active Substance: TOFACITINIB CITRATE
     Dosage: 11 MG, UNK
     Dates: start: 2017, end: 2017
  2. XELJANZ XR [Suspect]
     Active Substance: TOFACITINIB CITRATE
     Dosage: 11 MG, UNK
     Dates: start: 2017
  3. XELJANZ XR [Suspect]
     Active Substance: TOFACITINIB CITRATE
     Dosage: 11 MG, UNK
     Dates: start: 201707
  4. PREDNISONE. [Suspect]
     Active Substance: PREDNISONE
     Dosage: UNK
     Dates: end: 2017

REACTIONS (12)
  - Renal hypertrophy [Unknown]
  - Arthralgia [Unknown]
  - Infection [Unknown]
  - Back pain [Unknown]
  - Pain [Unknown]
  - Urinary tract infection [Unknown]
  - Fungal infection [Unknown]
  - Bacterial infection [Unknown]
  - Cellulitis [Unknown]
  - White blood cell count increased [Unknown]
  - Urine abnormality [Unknown]
  - Pain in extremity [Unknown]

NARRATIVE: CASE EVENT DATE: 2017
